FAERS Safety Report 8827435 (Version 1)
Quarter: 2012Q4

REPORT INFORMATION
  Report Type: 
  Country: US (occurrence: US)
  Receive Date: 20121005
  Receipt Date: 20121005
  Transmission Date: 20130627
  Serious: No
  Sender: FDA-Public Use
  Company Number: US-BRISTOL-MYERS SQUIBB COMPANY-16655011

PATIENT
  Age: 85 Year
  Sex: Female

DRUGS (3)
  1. IRBESARTAN [Suspect]
     Dates: end: 20120531
  2. NEURONTIN [Concomitant]
  3. MARIPEN [Concomitant]

REACTIONS (1)
  - Tinnitus [Unknown]
